FAERS Safety Report 9032964 (Version 3)
Quarter: 2013Q2

REPORT INFORMATION
  Report Type: Report from Study
  Country: CA (occurrence: CA)
  Receive Date: 20130128
  Receipt Date: 20130405
  Transmission Date: 20140414
  Serious: Yes (Hospitalization, Other)
  Sender: FDA-Public Use
  Company Number: CA-JNJFOC-20130110377

PATIENT
  Sex: Female
  Weight: 59 kg

DRUGS (2)
  1. REMICADE [Suspect]
     Indication: CROHN^S DISEASE
     Dosage: L1, L2
     Route: 042
     Dates: start: 20121220, end: 20130104
  2. REMICADE [Suspect]
     Indication: CROHN^S DISEASE
     Route: 042

REACTIONS (2)
  - Small intestinal obstruction [Unknown]
  - Ileal stenosis [Unknown]
